FAERS Safety Report 6929234-9 (Version None)
Quarter: 2010Q3

REPORT INFORMATION
  Report Type: 
  Country: None (occurrence: None)
  Receive Date: 20100817
  Receipt Date: 20100804
  Transmission Date: 20110219
  Serious: Yes (Hospitalization)
  Sender: FDA-Public Use
  Company Number: JP-ABBOTT-10P-087-0643373-00

PATIENT
  Sex: Male

DRUGS (15)
  1. SEVOFLURANE [Suspect]
     Indication: INDUCTION AND MAINTENANCE OF ANAESTHESIA
     Route: 055
     Dates: start: 20090319, end: 20090319
  2. SEVOFLURANE [Suspect]
     Route: 055
     Dates: start: 20090317, end: 20090318
  3. ROCURONIUM BROMIDE [Suspect]
     Indication: INDUCTION AND MAINTENANCE OF ANAESTHESIA
     Dates: start: 20090319, end: 20090319
  4. ROCURONIUM BROMIDE [Suspect]
     Dates: start: 20090317, end: 20090318
  5. DIPRIVAN [Concomitant]
     Indication: ANAESTHESIA
     Route: 042
     Dates: start: 20090319, end: 20090319
  6. DIPRIVAN [Concomitant]
     Dates: start: 20090317, end: 20090318
  7. FENTANYL CITRATE [Concomitant]
     Indication: MAINTENANCE OF ANAESTHESIA
     Dates: start: 20090319, end: 20090319
  8. FENTANYL CITRATE [Concomitant]
     Dates: start: 20090317, end: 20090318
  9. NITROUS OXIDE [Concomitant]
     Indication: MAINTENANCE OF ANAESTHESIA
     Dates: start: 20090317, end: 20090317
  10. KETALAR [Concomitant]
     Indication: ANAESTHESIA
     Dates: start: 20090317, end: 20090318
  11. TRICLORYL [Concomitant]
     Indication: ANAESTHETIC PREMEDICATION
     Dates: start: 20090317, end: 20090317
  12. ATARAX [Concomitant]
     Indication: ANAESTHETIC PREMEDICATION
     Dates: start: 20090317, end: 20090317
  13. MANNITOL ADENINE PHOSPHATE ADDED RED CELL CONCENTRATE [Concomitant]
     Indication: HAEMORRHAGE
     Dates: start: 20090317, end: 20090318
  14. FRESH FROZEN PLASMA [Concomitant]
     Indication: HAEMORRHAGE
     Dates: start: 20090317, end: 20090318
  15. PLATELETS, CONCENTRATED [Concomitant]
     Indication: HAEMORRHAGE
     Dates: start: 20090317, end: 20090318

REACTIONS (2)
  - MYOGLOBINURIA [None]
  - RHABDOMYOLYSIS [None]
